FAERS Safety Report 8165309-7 (Version None)
Quarter: 2012Q1

REPORT INFORMATION
  Report Type: 
  Country: None (occurrence: None)
  Receive Date: 20120222
  Receipt Date: 20120222
  Transmission Date: 20120608
  Serious: Yes (Other)
  Sender: FDA-Public Use
  Company Number: None

PATIENT
  Age: 74 Year
  Sex: Female
  Weight: 41.5 kg

DRUGS (12)
  1. FLOVENT DISKUS 100 [Concomitant]
  2. PREDNISONE TAB [Concomitant]
  3. MEGACE [Concomitant]
  4. METRPROLOL [Concomitant]
  5. TESSALON [Concomitant]
  6. RITALIN [Concomitant]
  7. VOTRIENT [Suspect]
     Indication: SMALL CELL LUNG CANCER STAGE UNSPECIFIED
     Dosage: 800MG ORALLY DAILY
     Route: 048
     Dates: start: 20111223, end: 20120217
  8. ALBUTEROL [Concomitant]
  9. LORAZEPAM [Concomitant]
  10. ZOLOFT [Concomitant]
  11. WELLBUTRIN [Concomitant]
  12. ZOCOR [Concomitant]

REACTIONS (5)
  - WEIGHT DECREASED [None]
  - DECREASED APPETITE [None]
  - FATIGUE [None]
  - AORTIC THROMBOSIS [None]
  - GAIT DISTURBANCE [None]
